FAERS Safety Report 24652600 (Version 1)
Quarter: 2024Q4

REPORT INFORMATION
  Report Type: Report from Study
  Country: CA (occurrence: CA)
  Receive Date: 20241122
  Receipt Date: 20241122
  Transmission Date: 20250114
  Serious: Yes (Other)
  Sender: SANDOZ
  Company Number: CA-SANDOZ-SDZ2024CA096920

PATIENT
  Sex: Female

DRUGS (11)
  1. CIMZIA [Suspect]
     Active Substance: CERTOLIZUMAB PEGOL
     Indication: Product used for unknown indication
     Dosage: UNK MG
     Route: 065
  2. ERELZI [Suspect]
     Active Substance: ETANERCEPT-SZZS
     Indication: Product used for unknown indication
     Dosage: UNK
     Route: 058
     Dates: start: 20241115
  3. ANASTROZOLE [Concomitant]
     Active Substance: ANASTROZOLE
     Indication: Neoplasm malignant
     Route: 065
  4. B12 [Concomitant]
     Indication: Product used for unknown indication
     Route: 065
  5. CALCIUM CITRATE [Concomitant]
     Active Substance: CALCIUM CITRATE
     Indication: Product used for unknown indication
     Route: 065
  6. CORTEF [Concomitant]
     Active Substance: HYDROCORTISONE
     Indication: Glucocorticoid deficiency
     Dosage: 10 MG, TAKES ONE IN THE MORNING AND HALF AT NIGHT
     Route: 065
  7. HYDROCORTISONE ACETATE [Concomitant]
     Active Substance: HYDROCORTISONE ACETATE
     Indication: Product used for unknown indication
     Dosage: (TAKES ONE IN THE MORNING AND HALF AT NIGHT AND PATIENT HAS TO TAKE ONGOING BECAUSE HER CORTISONE LE
     Route: 065
  8. FISH OIL [Concomitant]
     Active Substance: FISH OIL
     Indication: Product used for unknown indication
     Dosage: UNK
     Route: 065
  9. GLUCOSAMINE [Concomitant]
     Active Substance: GLUCOSAMINE
     Indication: Product used for unknown indication
     Dosage: UNK
     Route: 065
  10. MELATONIN [Concomitant]
     Active Substance: MELATONIN
     Indication: Product used for unknown indication
     Route: 065
  11. VITAMINS [Concomitant]
     Active Substance: VITAMINS
     Indication: Product used for unknown indication
     Route: 065

REACTIONS (1)
  - Mass [Unknown]
